FAERS Safety Report 9219349 (Version 1)
Quarter: 2013Q1

REPORT INFORMATION
  Report Type: Spontaneous
  Country: US (occurrence: None)
  Receive Date: 20120828
  Receipt Date: 20120828
  Transmission Date: 20140127
  Serious: No
  Sender: FDA-Public Use
  Company Number: 2011BH014868

PATIENT
  Age: 63 Year
  Sex: Female

DRUGS (7)
  1. KIOVIG LIQUID 10% SOLUTIONG FOR INFUSION VIAL GLASS(IMMUNOGLOBULIN, NORMAL HUMAN(SOLUTION FOR INFUSION) [Suspect]
     Indication: CHRONIC INFLAMMATORY DEMYELINATING POLYRADICULONEUROPATHY
     Route: 042
     Dates: start: 20110503
  2. ANAGRELIDE (ANAGRELIDE) [Concomitant]
  3. SIMVASTATIN(SIMVASTATIN) [Concomitant]
  4. LASIX (UKNOWN) [Concomitant]
  5. AMBIEN (ZOLPIDEM TARTRATE) (UKNOWN) [Suspect]
  6. PERCOCET(UKNOWN) [Suspect]
  7. ASPIRIN(ACETYLSALICYLIC ACID)(UNKNOWN) [Suspect]

REACTIONS (1)
  - Pain [None]
